FAERS Safety Report 5598149-3 (Version None)
Quarter: 2007Q4

REPORT INFORMATION
  Report Type: 
  Country: None (occurrence: None)
  Receive Date: 20071226
  Receipt Date: 20070907
  Transmission Date: 20080405
  Serious: No
  Sender: FDA-Public Use
  Company Number: 2007PV033416

PATIENT
  Age: 28 Year
  Sex: Female
  Weight: 73.9363 kg

DRUGS (4)
  1. SYMLIN [Suspect]
     Indication: TYPE 1 DIABETES MELLITUS
     Dosage: 45, 30. 15 MCG, TID, SC
     Route: 058
     Dates: start: 20070822, end: 20070828
  2. SYMLIN [Suspect]
     Indication: TYPE 1 DIABETES MELLITUS
     Dosage: 45, 30. 15 MCG, TID, SC
     Route: 058
     Dates: start: 20070829, end: 20070904
  3. SYMLIN [Suspect]
     Indication: TYPE 1 DIABETES MELLITUS
     Dosage: 45, 30. 15 MCG, TID, SC
     Route: 058
     Dates: start: 20070905
  4. HUMALOG [Concomitant]

REACTIONS (6)
  - BLOOD GLUCOSE DECREASED [None]
  - BLOOD GLUCOSE INCREASED [None]
  - DECREASED APPETITE [None]
  - DISTURBANCE IN ATTENTION [None]
  - DIZZINESS [None]
  - NAUSEA [None]
